FAERS Safety Report 9059978 (Version 2)
Quarter: 2013Q4

REPORT INFORMATION
  Report Type: Not Available
  Country: DK (occurrence: DK)
  Receive Date: 20130212
  Receipt Date: 20131202
  Transmission Date: 20140711
  Serious: Yes (Hospitalization)
  Sender: FDA-Public Use
  Company Number: DK-NAPPMUNDI-GBR-2013-0013133

PATIENT
  Age: 75 Year
  Sex: Male

DRUGS (10)
  1. MORPHINE SULFATE [Suspect]
     Indication: BACK PAIN
     Dosage: 10 MG, DAILY
     Route: 048
     Dates: start: 20121222, end: 20130103
  2. ZARATOR                            /01326101/ [Concomitant]
     Dosage: 20 MG, DAILY
  3. VIAGRA [Concomitant]
  4. LANTUS [Concomitant]
     Dosage: 135 IU, UNK
  5. MAREVAN [Concomitant]
     Dosage: 2.5 MG, PRN
     Dates: end: 20130211
  6. TRIATEC                            /00885601/ [Concomitant]
     Dosage: 10 MG, UNK
     Dates: end: 20130211
  7. FURIX [Concomitant]
     Dosage: 40 MG, TID
  8. DIGOXIN [Concomitant]
     Dosage: 125 MCG, UNK
  9. METOPROLOL SUCCINATE [Concomitant]
     Dosage: 150 MG, DAILY
  10. KALEORID [Concomitant]
     Dosage: 750 MG, DAILY

REACTIONS (5)
  - Presyncope [Recovered/Resolved]
  - Hypoglycaemia [Unknown]
  - Food aversion [Recovering/Resolving]
  - Nausea [Recovering/Resolving]
  - Dizziness [Recovering/Resolving]
